FAERS Safety Report 25277642 (Version 1)
Quarter: 2025Q2

REPORT INFORMATION
  Report Type: Report from Study
  Country: US (occurrence: US)
  Receive Date: 20250507
  Receipt Date: 20250507
  Transmission Date: 20250717
  Serious: Yes (Other)
  Sender: ACADIA PHARMACEUTICALS
  Company Number: US-ACADIA PHARMACEUTICALS INC.-ACA-2025-PIM-005056

PATIENT
  Sex: Male

DRUGS (15)
  1. NUPLAZID [Suspect]
     Active Substance: PIMAVANSERIN TARTRATE
     Indication: Parkinson^s disease
     Dosage: 34 MILLIGRAM, QD
     Route: 048
     Dates: start: 20250201
  2. ELIQUIS [Concomitant]
     Active Substance: APIXABAN
  3. OMEPRAZOLE [Concomitant]
     Active Substance: OMEPRAZOLE
  4. CYCLOBENZAPRINE [Concomitant]
     Active Substance: CYCLOBENZAPRINE
  5. CHLORTHALIDONE [Concomitant]
     Active Substance: CHLORTHALIDONE
  6. ENTACAPONE [Concomitant]
     Active Substance: ENTACAPONE
  7. BACLOFEN [Concomitant]
     Active Substance: BACLOFEN
  8. BUPROPION [Concomitant]
     Active Substance: BUPROPION
  9. AMLODIPINE BESYLATE [Concomitant]
     Active Substance: AMLODIPINE BESYLATE
  10. GABAPENTIN [Concomitant]
     Active Substance: GABAPENTIN
  11. SIMVASTATIN [Concomitant]
     Active Substance: SIMVASTATIN
  12. METFORMIN [Concomitant]
     Active Substance: METFORMIN HYDROCHLORIDE
  13. DONEPEZIL [Concomitant]
     Active Substance: DONEPEZIL
  14. BENAZEPRIL [Concomitant]
     Active Substance: BENAZEPRIL HYDROCHLORIDE
  15. CARBIDOPA AND LEVODOPA [Concomitant]
     Active Substance: CARBIDOPA\LEVODOPA

REACTIONS (1)
  - Myocardial necrosis marker increased [Unknown]
